FAERS Safety Report 7451143-X (Version None)
Quarter: 2011Q2

REPORT INFORMATION
  Report Type: 
  Country: None (occurrence: None)
  Receive Date: 20110502
  Receipt Date: 20110420
  Transmission Date: 20111010
  Serious: Yes (Other)
  Sender: FDA-Public Use
  Company Number: PHHY2010GB13337

PATIENT
  Sex: Female

DRUGS (1)
  1. ESTRADERM [Suspect]

REACTIONS (5)
  - ERYTHEMA [None]
  - SKIN REACTION [None]
  - HYPERSENSITIVITY [None]
  - SKIN IRRITATION [None]
  - SKIN ULCER [None]
